FAERS Safety Report 16307446 (Version 2)
Quarter: 2019Q2

REPORT INFORMATION
  Report Type: Spontaneous
  Country: CA (occurrence: CA)
  Receive Date: 20190514
  Receipt Date: 20190520
  Transmission Date: 20190711
  Serious: Yes (Hospitalization, Other)
  Sender: FDA-Public Use
  Company Number: CA-ROCHE-2314585

PATIENT
  Age: 17 Year
  Sex: Female

DRUGS (12)
  1. BENADRYL [Concomitant]
     Active Substance: DIPHENHYDRAMINE HYDROCHLORIDE
     Indication: PRODUCT USED FOR UNKNOWN INDICATION
     Dosage: UNK
     Route: 048
     Dates: start: 201204
  2. XOLAIR [Suspect]
     Active Substance: OMALIZUMAB
     Route: 058
     Dates: start: 20190107
  3. XOLAIR [Suspect]
     Active Substance: OMALIZUMAB
     Route: 058
     Dates: start: 20181108
  4. ESCITALOPRAM [Concomitant]
     Active Substance: ESCITALOPRAM OXALATE
     Indication: DEPRESSION
     Dosage: 1 DF, UNK
     Route: 048
     Dates: start: 201903
  5. XOLAIR [Suspect]
     Active Substance: OMALIZUMAB
     Indication: CHRONIC SPONTANEOUS URTICARIA
     Route: 058
     Dates: start: 20180905
  6. BENADRYL [Concomitant]
     Active Substance: DIPHENHYDRAMINE HYDROCHLORIDE
     Dosage: UNK
     Route: 065
     Dates: start: 201504
  7. ZANTAC [Concomitant]
     Active Substance: RANITIDINE HYDROCHLORIDE
     Indication: PRODUCT USED FOR UNKNOWN INDICATION
     Dosage: 2 DF, QD
     Route: 048
     Dates: start: 201804
  8. RUPALL [Concomitant]
     Active Substance: RUPATADINE FUMARATE
     Indication: PRODUCT USED FOR UNKNOWN INDICATION
     Dosage: 1 DF, QD
     Route: 048
  9. XOLAIR [Suspect]
     Active Substance: OMALIZUMAB
     Route: 058
     Dates: start: 20190107
  10. EPIPEN [Suspect]
     Active Substance: EPINEPHRINE
     Indication: ASTHMA
     Dosage: 4 DOSES
     Route: 065
  11. XOLAIR [Suspect]
     Active Substance: OMALIZUMAB
     Route: 058
     Dates: start: 20190129
  12. XOLAIR [Suspect]
     Active Substance: OMALIZUMAB
     Route: 058
     Dates: start: 20181205

REACTIONS (12)
  - Disturbance in attention [Unknown]
  - Asthma [Unknown]
  - Insomnia [Unknown]
  - Hypersensitivity [Unknown]
  - Skin plaque [Unknown]
  - Depression [Unknown]
  - Therapeutic product effect incomplete [Unknown]
  - Inappropriate schedule of product administration [Unknown]
  - Anaphylactic reaction [Not Recovered/Not Resolved]
  - Blood pressure decreased [Unknown]
  - Urticaria [Not Recovered/Not Resolved]
  - Rhinorrhoea [Unknown]

NARRATIVE: CASE EVENT DATE: 201901
